FAERS Safety Report 6428302-8 (Version None)
Quarter: 2009Q4

REPORT INFORMATION
  Report Type: 
  Country: None (occurrence: None)
  Receive Date: 20091030
  Receipt Date: 20091026
  Transmission Date: 20100525
  Serious: Yes (Death)
  Sender: FDA-Public Use
  Company Number: ADR49122009

PATIENT
  Age: 58 Year
  Sex: Male

DRUGS (3)
  1. CIPROFLOXACIN [Suspect]
     Indication: LOWER RESPIRATORY TRACT INFECTION
     Dosage: ORAL
     Route: 048
  2. DEXAMETHASONE [Concomitant]
  3. PHENYTOIN [Concomitant]

REACTIONS (2)
  - RENAL FAILURE [None]
  - TOXIC EPIDERMAL NECROLYSIS [None]
